FAERS Safety Report 16644337 (Version 3)
Quarter: 2020Q1

REPORT INFORMATION
  Report Type: Spontaneous
  Country: US (occurrence: US)
  Receive Date: 20190729
  Receipt Date: 20200302
  Transmission Date: 20200409
  Serious: Yes (Other)
  Sender: FDA-Public Use
  Company Number: US-UCBSA-2019030856

PATIENT
  Sex: Female

DRUGS (1)
  1. CIMZIA [Suspect]
     Active Substance: CERTOLIZUMAB PEGOL
     Indication: PRODUCT USED FOR UNKNOWN INDICATION
     Dosage: UNKNOWN

REACTIONS (7)
  - Maternal exposure during breast feeding [Unknown]
  - Throat irritation [Recovered/Resolved]
  - Increased upper airway secretion [Recovered/Resolved]
  - Wheezing [Recovered/Resolved]
  - Panic attack [Recovered/Resolved]
  - Maternal exposure during pregnancy [Unknown]
  - Vomiting [Recovered/Resolved]
